FAERS Safety Report 8076948-6 (Version None)
Quarter: 2012Q1

REPORT INFORMATION
  Report Type: 
  Country: None (occurrence: None)
  Receive Date: 20120127
  Receipt Date: 20120120
  Transmission Date: 20120608
  Serious: Yes (Hospitalization, Other)
  Sender: FDA-Public Use
  Company Number: US-ASTRAZENECA-2011SE39721

PATIENT
  Age: 48 Year
  Sex: Female
  Weight: 49.9 kg

DRUGS (19)
  1. SEROQUEL [Suspect]
     Route: 048
     Dates: start: 20110201
  2. CELEXA [Suspect]
     Route: 065
  3. AMITRIPTYLINE HCL [Concomitant]
  4. ZOLOFT [Concomitant]
  5. SEROQUEL [Suspect]
     Indication: SCHIZOAFFECTIVE DISORDER BIPOLAR TYPE
     Route: 048
     Dates: start: 20030101
  6. TEMAZEPAM [Concomitant]
  7. SEROQUEL [Suspect]
     Route: 048
     Dates: start: 20110508
  8. SEROQUEL [Suspect]
     Route: 048
  9. SEROQUEL [Suspect]
     Route: 048
  10. KLONOPIN [Concomitant]
     Indication: PANIC ATTACK
  11. TEMAZEPAM [Concomitant]
  12. SEROQUEL [Suspect]
     Indication: SLEEP DISORDER
     Route: 048
     Dates: start: 20030101
  13. SEROQUEL [Suspect]
     Route: 048
     Dates: start: 20110508
  14. SEROQUEL [Suspect]
     Route: 048
  15. KLONOPIN [Concomitant]
  16. AMITRIPTYLINE HCL [Concomitant]
  17. ZOLOFT [Concomitant]
  18. SEROQUEL [Suspect]
     Route: 048
  19. SEROQUEL [Suspect]
     Route: 048
     Dates: start: 20110201

REACTIONS (20)
  - ARTHROPOD BITE [None]
  - MIGRAINE WITH AURA [None]
  - MOBILITY DECREASED [None]
  - INCREASED TENDENCY TO BRUISE [None]
  - AMNESIA [None]
  - POST-TRAUMATIC NECK SYNDROME [None]
  - APPARENT DEATH [None]
  - UNRESPONSIVE TO STIMULI [None]
  - TOOTHACHE [None]
  - VISUAL IMPAIRMENT [None]
  - FALL [None]
  - ROAD TRAFFIC ACCIDENT [None]
  - DIABETES MELLITUS [None]
  - CONSTIPATION [None]
  - LOSS OF CONSCIOUSNESS [None]
  - OVARIAN CYST [None]
  - INCORRECT DOSE ADMINISTERED [None]
  - VISION BLURRED [None]
  - SOMNOLENCE [None]
  - IMPAIRED DRIVING ABILITY [None]
